FAERS Safety Report 14911794 (Version 1)
Quarter: 2018Q2

REPORT INFORMATION
  Report Type: Spontaneous
  Country: FR (occurrence: FR)
  Receive Date: 20180518
  Receipt Date: 20180518
  Transmission Date: 20180711
  Serious: Yes (Other)
  Sender: FDA-Public Use
  Company Number: FR-MERCK KGAA-2048038

PATIENT
  Sex: Female

DRUGS (1)
  1. NOVOTHYROX [Suspect]
     Active Substance: LEVOTHYROXINE SODIUM
     Indication: PRODUCT USED FOR UNKNOWN INDICATION

REACTIONS (17)
  - Psychiatric symptom [None]
  - Weight increased [None]
  - Hot flush [None]
  - Blood pressure increased [None]
  - Fall [None]
  - Inappropriate affect [None]
  - Alopecia [None]
  - Headache [None]
  - Pain in extremity [None]
  - Insomnia [None]
  - Fatigue [None]
  - Depressed mood [None]
  - Malaise [None]
  - Asthenia [None]
  - Anxiety [None]
  - Anaemia [None]
  - Muscle spasms [None]
